FAERS Safety Report 5890013-5 (Version None)
Quarter: 2008Q3

REPORT INFORMATION
  Report Type: 
  Country: None (occurrence: None)
  Receive Date: 20080919
  Receipt Date: 20080911
  Transmission Date: 20090109
  Serious: Yes (Other)
  Sender: FDA-Public Use
  Company Number: GB-GILEAD-2008-0018151

PATIENT
  Age: 33 Year
  Sex: Male

DRUGS (5)
  1. TRUVADA [Suspect]
     Dates: start: 20050701
  2. COMBIVIR [Suspect]
     Dates: start: 20040401
  3. REYATAZ [Suspect]
  4. RITONAVIR [Suspect]
  5. SUSTIVA [Suspect]
     Indication: HIV INFECTION
     Route: 048
     Dates: start: 20040401, end: 20070401

REACTIONS (3)
  - HAEMATURIA [None]
  - HEPATITIS [None]
  - SCHISTOSOMIASIS [None]
